FAERS Safety Report 4829947-9 (Version None)
Quarter: 2005Q4

REPORT INFORMATION
  Report Type: 
  Country: None (occurrence: None)
  Receive Date: 20051115
  Receipt Date: 20051107
  Transmission Date: 20060501
  Serious: Yes (Other)
  Sender: FDA-Public Use
  Company Number: DE-2005-023341

PATIENT
  Age: 63 Year
  Sex: Female

DRUGS (1)
  1. ANGELIQ [Suspect]
     Dates: start: 20050201

REACTIONS (1)
  - ANOSMIA [None]
